FAERS Safety Report 16380043 (Version 3)
Quarter: 2019Q4

REPORT INFORMATION
  Report Type: Report from Study
  Country: None (occurrence: US)
  Receive Date: 20190531
  Receipt Date: 20191014
  Transmission Date: 20200122
  Serious: Yes (Other)
  Sender: FDA-Public Use
  Company Number: US-ABBVIE-19K-163-2797550-00

PATIENT
  Age: 61 Year
  Sex: Female

DRUGS (2)
  1. HUMIRA [Suspect]
     Active Substance: ADALIMUMAB
     Indication: RHEUMATOID ARTHRITIS
     Route: 058
  2. NEURONTIN [Concomitant]
     Active Substance: GABAPENTIN
     Indication: PRODUCT USED FOR UNKNOWN INDICATION

REACTIONS (11)
  - Procedural haemorrhage [Recovering/Resolving]
  - Injection site pain [Unknown]
  - Swelling [Recovering/Resolving]
  - Fall [Recovered/Resolved]
  - Arthralgia [Unknown]
  - Memory impairment [Unknown]
  - Nausea [Unknown]
  - Diabetes mellitus [Not Recovered/Not Resolved]
  - Musculoskeletal pain [Unknown]
  - Tooth extraction [Recovering/Resolving]
  - Migraine [Recovered/Resolved]

NARRATIVE: CASE EVENT DATE: 2014
